FAERS Safety Report 8487005-9 (Version None)
Quarter: 2012Q3

REPORT INFORMATION
  Report Type: 
  Country: None (occurrence: None)
  Receive Date: 20120704
  Receipt Date: 20120629
  Transmission Date: 20120928
  Serious: Yes (Hospitalization, Other)
  Sender: FDA-Public Use
  Company Number: PHHY2012JP049923

PATIENT
  Age: 70 Year
  Sex: Female

DRUGS (3)
  1. RITALIN [Suspect]
     Indication: NARCOLEPSY
     Dosage: 30 MG, DAILY
     Route: 048
     Dates: start: 20020330
  2. ROHYPNOL [Suspect]
     Indication: SLEEP DISORDER
     Dosage: 2 MG, DAILY
     Route: 048
     Dates: start: 20020330
  3. ZOLPIDEM [Concomitant]
     Indication: SLEEP DISORDER
     Dosage: 5 MG, UNK
     Route: 048
     Dates: start: 20020330

REACTIONS (2)
  - FRACTURE [None]
  - FALL [None]
